FAERS Safety Report 14173021 (Version 3)
Quarter: 2018Q1

REPORT INFORMATION
  Report Type: Spontaneous
  Country: GB (occurrence: GB)
  Receive Date: 20171109
  Receipt Date: 20180130
  Transmission Date: 20180508
  Serious: Yes (Other)
  Sender: FDA-Public Use
  Company Number: GB-ORION CORPORATION ORION PHARMA-TREX2017-3465

PATIENT
  Age: 77 Year
  Sex: Female

DRUGS (3)
  1. METOJECT [Suspect]
     Active Substance: METHOTREXATE SODIUM
     Dosage: STRENGTH: 2.5 MG
     Route: 065
     Dates: end: 20171103
  2. METOJECT [Suspect]
     Active Substance: METHOTREXATE SODIUM
     Route: 065
  3. ENBREL [Suspect]
     Active Substance: ETANERCEPT
     Route: 058

REACTIONS (2)
  - Dry mouth [Not Recovered/Not Resolved]
  - Rheumatoid arthritis [Not Recovered/Not Resolved]
